FAERS Safety Report 9188168 (Version 2)
Quarter: 2013Q1

REPORT INFORMATION
  Report Type: Spontaneous
  Country: US (occurrence: US)
  Receive Date: 20130325
  Receipt Date: 20130325
  Transmission Date: 20140127
  Serious: Yes (Other)
  Sender: FDA-Public Use
  Company Number: US-RB-046961-12

PATIENT
  Age: 22 Year
  Sex: Female

DRUGS (2)
  1. SUBUTEX [Suspect]
     Indication: PRODUCT USED FOR UNKNOWN INDICATION
     Dosage: DOSING DETAILS UNKNOWN
     Route: 065
  2. SUBOXONE FILM [Suspect]
     Indication: PRODUCT USED FOR UNKNOWN INDICATION
     Dosage: SUBOXONE FILM; DOSING DETAILS UNKNOWN
     Route: 065

REACTIONS (7)
  - Foetal death [Recovered/Resolved]
  - Tongue eruption [Recovered/Resolved]
  - Ageusia [Recovered/Resolved]
  - Tongue exfoliation [Recovered/Resolved]
  - Tongue coated [Recovered/Resolved]
  - Glossodynia [Recovered/Resolved]
  - Exposure during pregnancy [Recovered/Resolved]
